FAERS Safety Report 4632942-6 (Version None)
Quarter: 2005Q2

REPORT INFORMATION
  Report Type: 
  Country: None (occurrence: None)
  Receive Date: 20050412
  Receipt Date: 20050404
  Transmission Date: 20051028
  Serious: Yes (Disabling)
  Sender: FDA-Public Use
  Company Number: US-MERCK-0504USA00442

PATIENT
  Age: 48 Year
  Sex: Male

DRUGS (8)
  1. FOSAMAX [Suspect]
     Indication: OSTEOPOROSIS
     Route: 048
     Dates: start: 20050328
  2. WELLBUTRIN [Concomitant]
     Route: 065
  3. PERPHENAZINE [Concomitant]
     Route: 065
  4. PULMICORT [Concomitant]
     Route: 065
  5. ALBUTEROL [Concomitant]
     Route: 065
  6. THEOPHYLLINE [Concomitant]
     Route: 065
  7. ATIVAN [Concomitant]
     Route: 065
  8. PRILOSEC [Concomitant]
     Route: 065

REACTIONS (2)
  - ANXIETY [None]
  - OESOPHAGEAL DISCOMFORT [None]
